FAERS Safety Report 6586438-5 (Version None)
Quarter: 2010Q1

REPORT INFORMATION
  Report Type: 
  Country: None (occurrence: None)
  Receive Date: 20100216
  Receipt Date: 20100216
  Transmission Date: 20100710
  Serious: Yes (Life-Threatening, Hospitalization)
  Sender: FDA-Public Use
  Company Number: None

PATIENT
  Age: 79 Year
  Sex: Male
  Weight: 68.2 kg

DRUGS (1)
  1. ANCEF [Suspect]
     Indication: INGUINAL HERNIA REPAIR
     Dosage: ANCEF 1 GRAM XL IV
     Route: 042
     Dates: start: 20100203

REACTIONS (7)
  - BLOOD PRESSURE DECREASED [None]
  - ELECTROCARDIOGRAM ST SEGMENT DEPRESSION [None]
  - ERYTHEMA [None]
  - EYELID OEDEMA [None]
  - LIP SWELLING [None]
  - PROCEDURAL COMPLICATION [None]
  - TACHYCARDIA [None]
